FAERS Safety Report 21366618 (Version 1)
Quarter: 2022Q3

REPORT INFORMATION
  Report Type: Spontaneous
  Country: US (occurrence: US)
  Receive Date: 20220923
  Receipt Date: 20220923
  Transmission Date: 20221027
  Serious: Yes (Hospitalization, Other)
  Sender: FDA-Public Use
  Company Number: US-APOTEX-2022AP013103

PATIENT
  Age: 26 Year
  Sex: Male

DRUGS (12)
  1. ARIPIPRAZOLE [Suspect]
     Active Substance: ARIPIPRAZOLE
     Indication: Agitation
     Dosage: 2 MILLIGRAM, BID
     Route: 065
  2. ARIPIPRAZOLE [Suspect]
     Active Substance: ARIPIPRAZOLE
     Indication: Paranoia
  3. OLANZAPINE [Suspect]
     Active Substance: OLANZAPINE
     Indication: Paranoia
     Dosage: 20 MILLIGRAM, Q.AM
     Route: 048
  4. OLANZAPINE [Suspect]
     Active Substance: OLANZAPINE
     Indication: Agitation
  5. RISPERIDONE [Suspect]
     Active Substance: RISPERIDONE
     Indication: Paranoia
     Dosage: UNK
     Route: 065
  6. RISPERIDONE [Suspect]
     Active Substance: RISPERIDONE
     Indication: Agitation
  7. LITHIUM [Suspect]
     Active Substance: LITHIUM
     Indication: Paranoia
     Dosage: UNK
     Route: 065
  8. LITHIUM [Suspect]
     Active Substance: LITHIUM
     Indication: Agitation
  9. FLUPHENAZINE [Suspect]
     Active Substance: FLUPHENAZINE
     Indication: Paranoia
     Dosage: UNK
     Route: 065
  10. FLUPHENAZINE [Suspect]
     Active Substance: FLUPHENAZINE
     Indication: Agitation
  11. CLONAZEPAM [Concomitant]
     Active Substance: CLONAZEPAM
     Indication: Product used for unknown indication
     Dosage: UNK, 1 MILLIGRAM (MG) IN THE MORNING AND 2 MG AT BEDTIME
     Route: 065
  12. PRAZOSIN [Concomitant]
     Active Substance: PRAZOSIN
     Indication: Product used for unknown indication
     Dosage: 1 MILLIGRAM, TID
     Route: 065

REACTIONS (2)
  - Rhabdomyolysis [Recovered/Resolved]
  - Neuroleptic malignant syndrome [Recovered/Resolved]
